FAERS Safety Report 11801941 (Version 1)
Quarter: 2015Q4

REPORT INFORMATION
  Report Type: Spontaneous
  Country: TR (occurrence: TR)
  Receive Date: 20151204
  Receipt Date: 20151204
  Transmission Date: 20160305
  Serious: Yes (Other)
  Sender: FDA-Public Use
  Company Number: TR-TEVA-614266ISR

PATIENT
  Age: 42 Year
  Sex: Male

DRUGS (4)
  1. VINCRISTINE [Suspect]
     Active Substance: VINCRISTINE
     Indication: HODGKIN^S DISEASE
     Dosage: TOTAL 6 CYCLES
     Route: 065
     Dates: start: 201211, end: 201305
  2. BLEOMYCIN [Suspect]
     Active Substance: BLEOMYCIN SULFATE
     Indication: HODGKIN^S DISEASE
     Dosage: TOTAL 6 CYCLES
     Route: 065
     Dates: start: 201211, end: 201305
  3. DEXAMETHASONE. [Suspect]
     Active Substance: DEXAMETHASONE
     Indication: HODGKIN^S DISEASE
     Dosage: TOTAL 6 CYCLES
     Route: 065
     Dates: start: 201211, end: 201305
  4. DOXORUBICIN [Suspect]
     Active Substance: DOXORUBICIN
     Indication: HODGKIN^S DISEASE
     Dosage: TOTAL 6 CYCLES
     Route: 065
     Dates: start: 201211, end: 201305

REACTIONS (2)
  - Histiocytosis haematophagic [Unknown]
  - Myopathy [Unknown]
